FAERS Safety Report 11271246 (Version 1)
Quarter: 2015Q3

REPORT INFORMATION
  Report Type: Spontaneous
  Country: US (occurrence: US)
  Receive Date: 20150714
  Receipt Date: 20150714
  Transmission Date: 20151125
  Serious: No
  Sender: FDA-Public Use
  Company Number: US-TEVA-577215USA

PATIENT
  Age: 35 Year
  Sex: Female

DRUGS (1)
  1. COPAXONE [Suspect]
     Active Substance: GLATIRAMER ACETATE
     Indication: MULTIPLE SCLEROSIS
     Dates: start: 20140917

REACTIONS (4)
  - Hyperhidrosis [Unknown]
  - Adverse event [Unknown]
  - Nausea [Unknown]
  - Palpitations [Unknown]

NARRATIVE: CASE EVENT DATE: 20150708
